FAERS Safety Report 23684450 (Version 1)
Quarter: 2024Q1

REPORT INFORMATION
  Report Type: Spontaneous
  Country: HR (occurrence: HR)
  Receive Date: 20240328
  Receipt Date: 20240328
  Transmission Date: 20240410
  Serious: Yes (Other)
  Sender: FDA-Public Use
  Company Number: HR-002147023-NVSC2024HR063022

PATIENT
  Sex: Female

DRUGS (2)
  1. RIBOCICLIB [Suspect]
     Active Substance: RIBOCICLIB
     Indication: Hormone receptor positive HER2 negative breast cancer
     Dosage: 600 MG, QD (DAILY 3 WEEKS, WEEK BREAK)
     Route: 065
     Dates: start: 202112
  2. LETROZOLE [Suspect]
     Active Substance: LETROZOLE
     Indication: Hormone receptor positive HER2 negative breast cancer
     Dosage: 2.5 MG (1X1)
     Route: 065
     Dates: start: 202112

REACTIONS (3)
  - Adenocarcinoma of colon [Unknown]
  - Adrenal adenoma [Unknown]
  - Goitre [Unknown]

NARRATIVE: CASE EVENT DATE: 20230501
